FAERS Safety Report 16367294 (Version 1)
Quarter: 2019Q2

REPORT INFORMATION
  Report Type: Spontaneous
  Country: JP (occurrence: JP)
  Receive Date: 20190529
  Receipt Date: 20190529
  Transmission Date: 20190711
  Serious: Yes (Other)
  Sender: FDA-Public Use
  Company Number: JP-TEVA-2019-JP-1055828

PATIENT
  Age: 57 Year
  Sex: Male

DRUGS (3)
  1. GENTAMICIN SULFATE. [Concomitant]
     Active Substance: GENTAMICIN SULFATE
     Indication: EVIDENCE BASED TREATMENT
     Route: 061
  2. PREDNISOLONE. [Suspect]
     Active Substance: PREDNISOLONE
     Indication: CARDIAC SARCOIDOSIS
     Dosage: 10 MILLIGRAM DAILY;
     Route: 065
  3. CEFCAPENE PIVOXIL [Concomitant]
     Active Substance: CEFCAPENE PIVOXIL
     Indication: EVIDENCE BASED TREATMENT
     Route: 048

REACTIONS (2)
  - Fungal skin infection [Recovered/Resolved]
  - Phaeohyphomycosis [Recovered/Resolved]
